FAERS Safety Report 8612051-1 (Version None)
Quarter: 2012Q3

REPORT INFORMATION
  Report Type: 
  Country: None (occurrence: None)
  Receive Date: 20120809
  Receipt Date: 20120730
  Transmission Date: 20120928
  Serious: Yes (Other)
  Sender: FDA-Public Use
  Company Number: JP-2012-15939

PATIENT
  Age: 58 Year
  Sex: Male
  Weight: 62 kg

DRUGS (13)
  1. DOPAMINE HYDROCHLORIDE [Concomitant]
  2. SAMSCA [Suspect]
     Indication: FLUID RETENTION
     Dosage: 7.5 MG MILLIGRAM(S), QAM, ORAL
     Route: 048
     Dates: start: 20120524, end: 20120524
  3. LASIX [Suspect]
  4. ENALAPRIL MALEATE [Concomitant]
  5. CRESTOR (ROSUVASTAIN CALCIUM) [Concomitant]
  6. HUMALOG [Concomitant]
  7. ASPIRIN [Concomitant]
  8. PLAVIX [Concomitant]
  9. SIGMART (NICORANDIL) [Concomitant]
  10. SELARA (EPLERENONE) [Concomitant]
  11. LANTUS [Concomitant]
  12. RABEPRAZOLE SODIUM [Concomitant]
  13. CARVEDILOL [Concomitant]

REACTIONS (1)
  - BLOOD PRESSURE DECREASED [None]
